FAERS Safety Report 24144402 (Version 1)
Quarter: 2024Q3

REPORT INFORMATION
  Report Type: Spontaneous
  Country: NL (occurrence: NL)
  Receive Date: 20240728
  Receipt Date: 20240728
  Transmission Date: 20241016
  Serious: Yes (Other)
  Sender: IPSEN
  Company Number: None

PATIENT
  Age: 65 Year
  Sex: Female
  Weight: 78 kg

DRUGS (5)
  1. DYSPORT [Suspect]
     Active Substance: ABOBOTULINUMTOXINA
     Indication: Migraine
     Dosage: ONCE ABOUT 30 STINGS IN SKULL, 30 DOSAGE FORM
     Route: 065
     Dates: start: 20240124, end: 20240124
  2. DYSPORT [Suspect]
     Active Substance: ABOBOTULINUMTOXINA
     Indication: Off label use
     Dosage: ONCE ABOUT 30 STINGS IN SKULL, 30 DOSAGE FORM
     Route: 065
     Dates: start: 20240417, end: 20240417
  3. ELETRIPTAN HYDROBROMIDE [Concomitant]
     Active Substance: ELETRIPTAN HYDROBROMIDE
     Dosage: FILM-COATED TABLET, 20 MG (MILLIGRAMS)
  4. FROVATRIPTAN [FROVATRIPTAN SUCCINATE MONOHYDRATE] [Concomitant]
     Dosage: TABLET, 2,5 MG (MILLIGRAM)
  5. CANDESARTAN [Concomitant]
     Active Substance: CANDESARTAN
     Dosage: TABLET, 8 MG (MILLIGRAM)

REACTIONS (5)
  - Syncope [Recovered/Resolved]
  - Procedural pain [Recovered/Resolved]
  - Memory impairment [Recovered/Resolved]
  - Migraine [Recovering/Resolving]
  - Off label use [Unknown]

NARRATIVE: CASE EVENT DATE: 20240124
